FAERS Safety Report 9788835 (Version 1)
Quarter: 2013Q4

REPORT INFORMATION
  Report Type: Report from Study
  Country: US (occurrence: US)
  Receive Date: 20131230
  Receipt Date: 20131230
  Transmission Date: 20140711
  Serious: Yes (Hospitalization, Other)
  Sender: FDA-Public Use
  Company Number: US-ASTELLAS-2013US013474

PATIENT
  Age: 54 Year
  Sex: Male

DRUGS (10)
  1. ERLOTINIB TABLET [Suspect]
     Indication: NON-SMALL CELL LUNG CANCER
     Dosage: 150 MG, UNKNOWN/D
     Route: 048
     Dates: start: 200902
  2. ERLOTINIB TABLET [Suspect]
     Indication: LUNG CANCER METASTATIC
  3. AVASTIN /01555201/ [Suspect]
     Indication: NON-SMALL CELL LUNG CANCER
     Dosage: UNK
     Route: 042
     Dates: start: 2008
  4. AVASTIN /01555201/ [Suspect]
     Indication: LUNG CANCER METASTATIC
  5. CARBOPLATIN [Concomitant]
     Indication: NON-SMALL CELL LUNG CANCER
     Dosage: 6 CYCLE AT 500/5
     Route: 065
     Dates: start: 2008
  6. CARBOPLATIN [Concomitant]
     Indication: LUNG CANCER METASTATIC
  7. PEMETREXED DISODIUM [Concomitant]
     Indication: NON-SMALL CELL LUNG CANCER
     Dosage: 6 CYCLE AT 500/5
     Route: 065
     Dates: start: 2008
  8. PEMETREXED DISODIUM [Concomitant]
     Indication: LUNG CANCER METASTATIC
  9. TAXOL [Concomitant]
     Indication: NON-SMALL CELL LUNG CANCER
     Dosage: 6 CYCLE
     Route: 065
     Dates: start: 2008
  10. TAXOL [Concomitant]
     Indication: LUNG CANCER METASTATIC

REACTIONS (7)
  - Haemothorax [Unknown]
  - White blood cell count abnormal [Unknown]
  - Pleural effusion [Unknown]
  - Malignant neoplasm progression [Not Recovered/Not Resolved]
  - Alopecia [Unknown]
  - Pain [Unknown]
  - Dyspnoea [Unknown]
